FAERS Safety Report 5441972-6 (Version None)
Quarter: 2007Q3

REPORT INFORMATION
  Report Type: 
  Country: None (occurrence: None)
  Receive Date: 20070904
  Receipt Date: 20070828
  Transmission Date: 20080115
  Serious: Yes (Hospitalization)
  Sender: FDA-Public Use
  Company Number: B0481624A

PATIENT
  Age: 33 Year
  Sex: Female
  Weight: 62 kg

DRUGS (6)
  1. EPIVIR [Suspect]
     Indication: INFECTION PROPHYLAXIS
     Dosage: 100MG TWICE PER DAY
     Route: 048
     Dates: start: 20070609
  2. RETROVIR [Suspect]
     Indication: INFECTION PROPHYLAXIS
     Dosage: 150MG TWICE PER DAY
     Route: 048
     Dates: start: 20070609
  3. VIRACEPT [Suspect]
     Indication: INFECTION PROPHYLAXIS
     Dosage: 250MG TWICE PER DAY
     Route: 048
     Dates: start: 20070609
  4. TOCOLYTIC AGENTS [Suspect]
  5. ANTIBIOTICS [Suspect]
  6. STEROIDS [Suspect]

REACTIONS (4)
  - DRUG EXPOSURE DURING PREGNANCY [None]
  - PREMATURE LABOUR [None]
  - PULMONARY EMBOLISM [None]
  - PULMONARY THROMBOSIS [None]
